FAERS Safety Report 9228339 (Version 1)
Quarter: 2013Q2

REPORT INFORMATION
  Report Type: Report from Study
  Country: CA (occurrence: CA)
  Receive Date: 20130412
  Receipt Date: 20130412
  Transmission Date: 20140414
  Serious: Yes (Death, Other)
  Sender: FDA-Public Use
  Company Number: CA-ROCHE-GNE214535

PATIENT
  Age: 65 Year
  Sex: Female

DRUGS (1)
  1. ALTEPLASE [Suspect]
     Indication: CEREBROVASCULAR ACCIDENT
     Route: 042

REACTIONS (13)
  - Myocardial infarction [Unknown]
  - Intracardiac thrombus [Unknown]
  - Respiratory failure [Fatal]
  - Cardiac failure congestive [Fatal]
  - Renal failure acute [Fatal]
  - Loss of consciousness [Recovered/Resolved]
  - Respiratory depression [Unknown]
  - Cardiogenic shock [Unknown]
  - Atrioventricular block complete [Unknown]
  - Cardiac arrest [Unknown]
  - Embolic stroke [Unknown]
  - Multi-organ failure [Fatal]
  - Pneumonia [Fatal]
